FAERS Safety Report 4652359-8 (Version None)
Quarter: 2005Q2

REPORT INFORMATION
  Report Type: 
  Country: None (occurrence: None)
  Receive Date: 20050504
  Receipt Date: 20050318
  Transmission Date: 20051028
  Serious: Yes (Other)
  Sender: FDA-Public Use
  Company Number: DE-GLAXOSMITHKLINE-D0046194A

PATIENT
  Age: 63 Year
  Sex: Female
  Weight: 87 kg

DRUGS (15)
  1. AVANDIA [Suspect]
     Indication: DIABETES MELLITUS
     Dosage: 4MG UNKNOWN
     Route: 048
     Dates: start: 20040303, end: 20040623
  2. L-THYROXIN 100 [Concomitant]
     Dosage: 100MG IN THE MORNING
     Route: 048
  3. ASPIRIN [Concomitant]
     Indication: METABOLIC SYNDROME
     Dosage: 100MG IN THE MORNING
     Route: 048
  4. METFORMIN HCL [Concomitant]
     Indication: METABOLIC SYNDROME
     Dosage: 1G TWICE PER DAY
     Route: 065
  5. VALSARTAN [Concomitant]
     Indication: METABOLIC SYNDROME
     Dosage: 160MG PER DAY
     Route: 048
  6. HYDROCHLOROTHIAZID [Concomitant]
     Indication: METABOLIC SYNDROME
     Dosage: 25MG PER DAY
     Route: 065
  7. BISOPROLOL FUMARATE [Concomitant]
     Indication: METABOLIC SYNDROME
     Dosage: 10MG PER DAY
     Route: 065
  8. ALLOPURINOL [Concomitant]
     Indication: METABOLIC SYNDROME
     Dosage: 300MG PER DAY
     Route: 065
  9. SIMVASTATIN [Concomitant]
     Indication: METABOLIC SYNDROME
     Dosage: 20MG PER DAY
     Route: 065
  10. FENOFIBRAT [Concomitant]
     Indication: METABOLIC SYNDROME
     Dosage: 160MG PER DAY
     Route: 065
  11. OPIPRAMOL [Concomitant]
     Indication: METABOLIC SYNDROME
     Dosage: 50MG PER DAY
     Route: 065
  12. AMARYL [Concomitant]
     Dosage: 1.5MG IN THE MORNING
     Route: 065
  13. TORSEMIDE [Concomitant]
     Dosage: 5MG TWICE PER DAY
     Route: 065
  14. ZOPICLONE [Concomitant]
     Route: 065
  15. ARCOXIA [Concomitant]
     Route: 065

REACTIONS (11)
  - ANAEMIA [None]
  - ARTHRALGIA [None]
  - DYSPNOEA EXERTIONAL [None]
  - GENERALISED OEDEMA [None]
  - GLYCOSYLATED HAEMOGLOBIN INCREASED [None]
  - JOINT SWELLING [None]
  - NOCTURIA [None]
  - OEDEMA PERIPHERAL [None]
  - PAIN IN EXTREMITY [None]
  - SLEEP DISORDER [None]
  - WEIGHT INCREASED [None]
